FAERS Safety Report 6794192-7 (Version None)
Quarter: 2010Q2

REPORT INFORMATION
  Report Type: 
  Country: None (occurrence: None)
  Receive Date: 20100624
  Receipt Date: 20100524
  Transmission Date: 20101027
  Serious: Yes (Other)
  Sender: FDA-Public Use
  Company Number: US-PFIZER INC-2009186230

PATIENT
  Sex: Female
  Weight: 83.9 kg

DRUGS (2)
  1. DEPO-PROVERA [Suspect]
     Indication: CONTRACEPTION
     Dosage: UNK
     Dates: start: 20080101
  2. LAMICTAL [Concomitant]
     Indication: DEPRESSION
     Dosage: UNK

REACTIONS (3)
  - AMENORRHOEA [None]
  - MENORRHAGIA [None]
  - METRORRHAGIA [None]
